FAERS Safety Report 6591046-6 (Version None)
Quarter: 2010Q1

REPORT INFORMATION
  Report Type: 
  Country: None (occurrence: None)
  Receive Date: 20100219
  Receipt Date: 20100208
  Transmission Date: 20100710
  Serious: Yes (Other)
  Sender: FDA-Public Use
  Company Number: US-JNJCH-2010004214

PATIENT
  Age: 46 Year
  Sex: Male
  Weight: 88.9 kg

DRUGS (3)
  1. BENADRYL [Suspect]
     Indication: SKIN DISORDER
     Dosage: TEXT:UNSPECIFIED
     Route: 048
  2. ONDANSETRON [Concomitant]
     Indication: NAUSEA
     Route: 065
  3. TEMAZEPAM [Concomitant]
     Indication: SLEEP DISORDER
     Dosage: TEXT:UNSPECIFIED
     Route: 065

REACTIONS (5)
  - DEHYDRATION [None]
  - GASTROINTESTINAL DISORDER [None]
  - OFF LABEL USE [None]
  - VOMITING [None]
  - WEIGHT DECREASED [None]
